FAERS Safety Report 23077919 (Version 1)
Quarter: 2023Q4

REPORT INFORMATION
  Report Type: Spontaneous
  Country: US (occurrence: US)
  Receive Date: 20231018
  Receipt Date: 20231018
  Transmission Date: 20240109
  Serious: Yes (Hospitalization)
  Sender: FDA-Public Use
  Company Number: US-SA-SAC20231017000877

PATIENT
  Age: 57 Year
  Sex: Male

DRUGS (2)
  1. ALPROLIX [Suspect]
     Active Substance: EFTRENONACOG ALFA
     Dosage: 15000 IU (+/-10%)
     Route: 065
  2. ALPROLIX [Suspect]
     Active Substance: EFTRENONACOG ALFA
     Dosage: 15000 IU (+/-10%)
     Route: 065

REACTIONS (3)
  - Road traffic accident [Unknown]
  - Skin abrasion [Unknown]
  - Myalgia [Unknown]

NARRATIVE: CASE EVENT DATE: 20231007
